FAERS Safety Report 4879896-5 (Version None)
Quarter: 2006Q1

REPORT INFORMATION
  Report Type: 
  Country: None (occurrence: None)
  Receive Date: 20060113
  Receipt Date: 20050317
  Transmission Date: 20060701
  Serious: Yes (Hospitalization, Disabling)
  Sender: FDA-Public Use
  Company Number: US-MERCK-0503USA03425

PATIENT
  Age: 60 Year
  Sex: Female
  Weight: 71 kg

DRUGS (28)
  1. VIOXX [Suspect]
     Indication: BACK PAIN
     Route: 048
     Dates: start: 20040301, end: 20040501
  2. VIOXX [Suspect]
     Indication: ARTHRITIS
     Route: 048
     Dates: start: 20040301, end: 20040501
  3. PAXIL [Concomitant]
     Route: 065
  4. ALLEGRA [Concomitant]
     Route: 065
  5. ATIVAN [Concomitant]
     Route: 065
  6. CHOLESTYRAMINE RESIN [Concomitant]
     Route: 065
  7. METRONIDAZOLE [Concomitant]
     Route: 065
  8. COUMADIN [Concomitant]
     Route: 065
  9. IMODIUM [Concomitant]
     Route: 065
  10. LOMOTIL [Concomitant]
     Route: 065
  11. ESTRACE [Concomitant]
     Route: 065
  12. PREMARIN [Concomitant]
     Route: 065
  13. HYDROXYZINE HYDROCHLORIDE [Concomitant]
     Route: 065
  14. VALIUM [Concomitant]
     Route: 065
  15. VICODIN [Concomitant]
     Route: 065
  16. INDOCIN [Concomitant]
     Route: 065
  17. COMPAZINE [Concomitant]
     Route: 065
  18. WELLBUTRIN [Concomitant]
     Route: 065
  19. BENADRYL [Concomitant]
     Route: 065
  20. IBUPROFEN [Concomitant]
     Route: 065
  21. ZANTAC [Concomitant]
     Route: 065
  22. PROZAC [Concomitant]
     Route: 065
  23. ROBAXIN [Concomitant]
     Route: 065
  24. SERZONE [Concomitant]
     Route: 065
  25. DICYCLOMINE HYDROCHLORIDE [Concomitant]
     Route: 065
  26. DARVOCET-N 50 [Concomitant]
     Route: 065
  27. LORATADINE [Concomitant]
     Route: 065
  28. PREDNISONE [Concomitant]
     Route: 065

REACTIONS (3)
  - CEREBROVASCULAR ACCIDENT [None]
  - DIARRHOEA [None]
  - INJURY [None]
